FAERS Safety Report 4279936-0 (Version None)
Quarter: 2004Q1

REPORT INFORMATION
  Report Type: 
  Country: None (occurrence: None)
  Receive Date: 20040126
  Receipt Date: 20040112
  Transmission Date: 20041129
  Serious: Yes (Other)
  Sender: FDA-Public Use
  Company Number: 22801

PATIENT
  Age: 21 Year
  Sex: Female

DRUGS (2)
  1. METRONIDAZOLE (UNSPECIFIED) (METRONIDAZOLE) [Suspect]
  2. CLOZARIL [Suspect]
     Indication: SCHIZOPHRENIA
     Dosage: (1 IN 1 DAY (S)) ORAL
     Route: 048
     Dates: start: 20011209

REACTIONS (4)
  - ABORTION INDUCED [None]
  - FATIGUE [None]
  - MOOD SWINGS [None]
  - PREGNANCY [None]
